FAERS Safety Report 13447771 (Version 1)
Quarter: 2017Q2

REPORT INFORMATION
  Report Type: Spontaneous
  Country: US (occurrence: US)
  Receive Date: 20170417
  Receipt Date: 20170417
  Transmission Date: 20170830
  Serious: Yes (Other)
  Sender: FDA-Public Use
  Company Number: None

PATIENT
  Age: 36 Year
  Sex: Female
  Weight: 63.05 kg

DRUGS (1)
  1. SUBOXONE [Suspect]
     Active Substance: BUPRENORPHINE HYDROCHLORIDE\NALOXONE HYDROCHLORIDE
     Indication: DRUG USE DISORDER
     Dosage: SUBOXONE 8/2 MG 1? TAB QD (TW) S.L.
     Route: 060
     Dates: start: 20170227, end: 20170327

REACTIONS (1)
  - Glossitis [None]

NARRATIVE: CASE EVENT DATE: 20170327
